FAERS Safety Report 9456564 (Version 1)
Quarter: 2013Q3

REPORT INFORMATION
  Report Type: Spontaneous
  Country: US (occurrence: US)
  Receive Date: 20130813
  Receipt Date: 20130813
  Transmission Date: 20140515
  Serious: Yes (Other)
  Sender: FDA-Public Use
  Company Number: US-GLAXOSMITHKLINE-A1037389A

PATIENT
  Age: 72 Year
  Sex: Male

DRUGS (13)
  1. VOTRIENT [Suspect]
     Indication: RENAL CELL CARCINOMA
     Dosage: 800MG PER DAY
     Route: 048
  2. LANTUS [Concomitant]
  3. ASPIRIN [Concomitant]
  4. CALCIUM CARBONATE [Concomitant]
  5. CARVEDILOL [Concomitant]
  6. CYANOCOBALAMIN [Concomitant]
  7. FOLIC ACID [Concomitant]
  8. LIPITOR [Concomitant]
  9. LISINOPRIL [Concomitant]
  10. NITROGLYCERINE [Concomitant]
  11. SPIRONOLACTONE [Concomitant]
  12. BRILINTA [Concomitant]
  13. VITAMIN D3 [Concomitant]

REACTIONS (5)
  - Spinal cord neoplasm [Unknown]
  - Drug ineffective [Unknown]
  - Dysgeusia [Unknown]
  - Diarrhoea [Unknown]
  - Hair colour changes [Unknown]
